FAERS Safety Report 6407260-6 (Version None)
Quarter: 2009Q4

REPORT INFORMATION
  Report Type: 
  Country: None (occurrence: None)
  Receive Date: 20091020
  Receipt Date: 20091008
  Transmission Date: 20100525
  Serious: Yes (Other)
  Sender: FDA-Public Use
  Company Number: PHEH2008US07358

PATIENT
  Sex: Male

DRUGS (25)
  1. ZOMETA [Suspect]
     Dosage: 4 MG, UNK
     Route: 042
     Dates: end: 20041001
  2. AMOXICILLIN [Concomitant]
     Dosage: 500MG
     Dates: start: 20081101
  3. NEOMYCIN SULFATE/POLYMYXIN B SULFATE [Concomitant]
     Dosage: 1% OINTMENT
     Route: 061
     Dates: start: 20080701
  4. MORPHINE SULFATE [Concomitant]
     Dosage: 15MG ER
     Dates: start: 20080301
  5. PENICILLIN V POTASSIUM [Concomitant]
     Dosage: 500MG
     Dates: start: 20070801
  6. FINASTERIDE [Concomitant]
     Dosage: 5MG
     Dates: start: 20060901
  7. FERROUS SULFATE TAB [Concomitant]
     Dosage: 325MG
  8. PROSCAR [Concomitant]
     Dosage: 5MG
     Dates: start: 20060801
  9. ACYCLOVIR [Concomitant]
     Dosage: 400MG
     Dates: start: 20060701
  10. CIPROFLOXACIN HYDROCHLORIDE [Concomitant]
     Dosage: 750MG
     Dates: start: 20060601
  11. GABAPENTIN [Concomitant]
     Dosage: 300MG
     Dates: start: 20060401
  12. WARFARIN SODIUM [Concomitant]
     Dosage: UNK
     Dates: start: 20060201
  13. CYCLOBENZAPRINE HCL [Concomitant]
     Dosage: 10MG
     Dates: start: 20051101
  14. PROCHLORPERAZINE MALEATE [Concomitant]
     Dosage: 10MG
     Dates: start: 20050901
  15. THALOMID [Concomitant]
     Dosage: 50MG
     Dates: start: 20050701
  16. OXYCODONE [Concomitant]
     Dosage: 10MG
     Dates: start: 20050701
  17. CLINDAMYCIN HYDROCHLORIDE [Concomitant]
     Dosage: 300MG
     Dates: start: 20050301
  18. OXYCONTIN [Concomitant]
     Dosage: 10MG
     Dates: start: 20050201
  19. ROXICET [Concomitant]
     Dosage: 5/325MG
     Dates: start: 20050201
  20. NORTRIPTYLINE HYDROCHLORIDE [Concomitant]
     Dosage: 25MG
     Dates: start: 20050201
  21. RADIATION THERAPY [Concomitant]
  22. VINCRISTINE [Concomitant]
  23. ADRIAMYCIN PFS [Concomitant]
  24. DECADRON                                /CAN/ [Concomitant]
  25. NORTRIPTYLINE [Concomitant]

REACTIONS (35)
  - ABSCESS DRAINAGE [None]
  - ANXIETY [None]
  - APICECTOMY [None]
  - ARTHRITIS [None]
  - BACK PAIN [None]
  - BURSITIS [None]
  - CENTRAL VENOUS CATHETERISATION [None]
  - COMPRESSION FRACTURE [None]
  - DECREASED APPETITE [None]
  - DEEP VEIN THROMBOSIS [None]
  - DENTURE WEARER [None]
  - DYSGEUSIA [None]
  - ENDODONTIC PROCEDURE [None]
  - FATIGUE [None]
  - GENERAL PHYSICAL HEALTH DETERIORATION [None]
  - GINGIVAL BLEEDING [None]
  - HAIR GROWTH ABNORMAL [None]
  - HYPOAESTHESIA [None]
  - INSOMNIA [None]
  - LOOSE TOOTH [None]
  - LOSS OF CONSCIOUSNESS [None]
  - MUSCULOSKELETAL STIFFNESS [None]
  - NEURALGIA [None]
  - NEUROPATHY PERIPHERAL [None]
  - OSTEOMYELITIS [None]
  - OSTEONECROSIS [None]
  - PAIN [None]
  - PARAESTHESIA [None]
  - PERIODONTAL DISEASE [None]
  - PROSTATISM [None]
  - RIB FRACTURE [None]
  - SOMNOLENCE [None]
  - TOOTH EROSION [None]
  - TOOTH EXTRACTION [None]
  - WEIGHT DECREASED [None]
